FAERS Safety Report 9521635 (Version 9)
Quarter: 2014Q1

REPORT INFORMATION
  Report Type: Spontaneous
  Country: US (occurrence: US)
  Receive Date: 20130913
  Receipt Date: 20140311
  Transmission Date: 20141002
  Serious: Yes (Hospitalization, Other)
  Sender: FDA-Public Use
  Company Number: PHEH2008US011962

PATIENT
  Sex: Female

DRUGS (8)
  1. ZOMETA [Suspect]
     Indication: METASTASES TO BONE
     Dosage: 4 MG, QMO
     Route: 042
     Dates: start: 200311, end: 2006
  2. ZOMETA [Suspect]
     Indication: NON-SMALL CELL LUNG CANCER
  3. ZOMETA [Suspect]
     Indication: OSTEOPOROSIS
  4. ACTONEL [Suspect]
  5. SYNTHROID [Concomitant]
  6. PRILOSEC [Concomitant]
  7. QUININE SULFATE [Concomitant]
  8. VITAMIN D [Concomitant]

REACTIONS (200)
  - Device related infection [Recovering/Resolving]
  - Arthritis [Unknown]
  - Osteonecrosis of jaw [Recovering/Resolving]
  - Injury [Unknown]
  - Disability [Unknown]
  - Pain [Unknown]
  - Toothache [Unknown]
  - Anxiety [Unknown]
  - Anhedonia [Unknown]
  - Exposed bone in jaw [Unknown]
  - Dry mouth [Unknown]
  - Gingival pain [Unknown]
  - Wound dehiscence [Unknown]
  - Radiation fibrosis [Unknown]
  - Pleural effusion [Unknown]
  - Anaemia [Unknown]
  - Bone pain [Not Recovered/Not Resolved]
  - Pleural fibrosis [Unknown]
  - Amnesia [Unknown]
  - Neuropathy peripheral [Unknown]
  - Actinic keratosis [Unknown]
  - Lichenoid keratosis [Unknown]
  - Second primary malignancy [Unknown]
  - Squamous cell carcinoma [Unknown]
  - Skin cancer [Unknown]
  - Bowen^s disease [Unknown]
  - Arthralgia [Unknown]
  - Gait disturbance [Unknown]
  - Osteoarthritis [Unknown]
  - Hypertrophy [Unknown]
  - Mitral valve incompetence [Unknown]
  - Tricuspid valve incompetence [Unknown]
  - Respiratory failure [Unknown]
  - Chronic obstructive pulmonary disease [Unknown]
  - Embolism [Unknown]
  - Oesophagitis [Unknown]
  - Obstructive airways disorder [Unknown]
  - Pulmonary embolism [Unknown]
  - Pleural calcification [Unknown]
  - Lung consolidation [Unknown]
  - Bundle branch block left [Unknown]
  - Supraventricular extrasystoles [Unknown]
  - Ventricular dyssynchrony [Unknown]
  - Scoliosis [Unknown]
  - Spinal osteoarthritis [Unknown]
  - Mediastinal shift [Unknown]
  - Bullous lung disease [Unknown]
  - Asthma [Unknown]
  - Splenic granuloma [Unknown]
  - Muscle atrophy [Unknown]
  - Thyroid neoplasm [Unknown]
  - Goitre [Unknown]
  - Renal failure chronic [Unknown]
  - Hyperlipidaemia [Unknown]
  - Splenic calcification [Unknown]
  - Device dislocation [Unknown]
  - Right atrial dilatation [Unknown]
  - Bone deformity [Unknown]
  - Osteosclerosis [Unknown]
  - Atelectasis [Unknown]
  - Bone erosion [Unknown]
  - Exostosis [Unknown]
  - Hyperplasia [Unknown]
  - Parakeratosis [Unknown]
  - Xerosis [Unknown]
  - Skin haemorrhage [Unknown]
  - Lymphangioma [Unknown]
  - Papule [Unknown]
  - Joint dislocation [Unknown]
  - Depression [Unknown]
  - Atrial fibrillation [Unknown]
  - Gastritis erosive [Unknown]
  - Rectal polyp [Unknown]
  - Diverticulum intestinal [Unknown]
  - Occult blood positive [Unknown]
  - Pneumonia [Unknown]
  - Mass [Unknown]
  - Uterine leiomyoma [Unknown]
  - Intervertebral disc degeneration [Unknown]
  - Vertebral foraminal stenosis [Unknown]
  - Compression fracture [Unknown]
  - Hypertension [Unknown]
  - Haemorrhoids [Unknown]
  - Cataract [Unknown]
  - Emphysema [Unknown]
  - Osteopenia [Unknown]
  - Carpal tunnel syndrome [Unknown]
  - Diabetes mellitus [Unknown]
  - Epilepsy [Unknown]
  - Synovial cyst [Unknown]
  - Hypokalaemia [Unknown]
  - Left ventricular hypertrophy [Unknown]
  - Brow ptosis [Unknown]
  - Cutis laxa [Unknown]
  - Localised infection [Unknown]
  - Cholelithiasis [Unknown]
  - Gliosis [Unknown]
  - Intervertebral disc disorder [Unknown]
  - Oedema [Unknown]
  - Radiculopathy [Unknown]
  - Hallucination [Unknown]
  - Intermittent claudication [Unknown]
  - Lumbar radiculopathy [Unknown]
  - Peroneal nerve palsy [Unknown]
  - Intervertebral disc protrusion [Unknown]
  - Decreased appetite [Unknown]
  - Hypoaesthesia [Unknown]
  - Peripheral coldness [Unknown]
  - Wound [Unknown]
  - Asthenia [Unknown]
  - Mitral valve calcification [Unknown]
  - Aortic arteriosclerosis [Unknown]
  - Hypertensive heart disease [Unknown]
  - Arteriosclerosis [Unknown]
  - Facial wasting [Unknown]
  - Polyneuropathy [Unknown]
  - Pneumonitis [Unknown]
  - Cervical spinal stenosis [Unknown]
  - Lordosis [Unknown]
  - Diastolic dysfunction [Unknown]
  - Hypokinesia [Unknown]
  - Vertebral wedging [Unknown]
  - Temperature regulation disorder [Unknown]
  - Pyrexia [Unknown]
  - Chest pain [Unknown]
  - Swelling [Unknown]
  - Rib fracture [Unknown]
  - Deafness [Unknown]
  - Dementia Alzheimer^s type [Unknown]
  - Arrhythmia [Unknown]
  - Pollakiuria [Unknown]
  - Cognitive disorder [Unknown]
  - Confusional state [Unknown]
  - Palpitations [Unknown]
  - Melanocytic naevus [Unknown]
  - Dysphagia [Unknown]
  - Diplopia [Unknown]
  - Pruritus [Unknown]
  - Haemorrhage [Unknown]
  - Hyperkalaemia [Unknown]
  - Urinary tract infection [Unknown]
  - Cellulitis [Unknown]
  - Musculoskeletal stiffness [Unknown]
  - Alanine aminotransferase abnormal [Unknown]
  - Myalgia [Unknown]
  - Visual impairment [Unknown]
  - Peripheral vascular disorder [Unknown]
  - Abscess limb [Unknown]
  - Ingrowing nail [Unknown]
  - Skin ulcer [Unknown]
  - Road traffic accident [Unknown]
  - Encephalopathy [Unknown]
  - Affective disorder [Unknown]
  - Motor dysfunction [Unknown]
  - Intervertebral disc space narrowing [Unknown]
  - Spinal column stenosis [Unknown]
  - Deafness neurosensory [Unknown]
  - Mononeuritis [Unknown]
  - Cardiac murmur [Unknown]
  - Rhinitis [Unknown]
  - Nasal septum deviation [Unknown]
  - Enterobacter test positive [Unknown]
  - Soft tissue disorder [Unknown]
  - Visual acuity reduced [Unknown]
  - Foot deformity [Unknown]
  - Rheumatoid arthritis [Unknown]
  - Monoclonal gammopathy [Unknown]
  - Entropion [Unknown]
  - Blepharitis [Unknown]
  - Trichiasis [Unknown]
  - Eustachian tube dysfunction [Unknown]
  - Eustachian tube patulous [Unknown]
  - Dry eye [Unknown]
  - Post-traumatic neck syndrome [Unknown]
  - Myocardial ischaemia [Unknown]
  - Nasal turbinate hypertrophy [Unknown]
  - Hip fracture [Unknown]
  - Syncope [Unknown]
  - Aortic valve incompetence [Unknown]
  - Coronary artery disease [Unknown]
  - Haematoma [Unknown]
  - Myofascial pain syndrome [Unknown]
  - Lumbar spinal stenosis [Unknown]
  - Fibromyalgia [Unknown]
  - Vascular calcification [Unknown]
  - Arteriosclerosis coronary artery [Unknown]
  - Bronchitis chronic [Unknown]
  - Vertigo positional [Unknown]
  - Respiratory distress [Unknown]
  - Gastritis [Unknown]
  - Cerebral atrophy [Unknown]
  - Aortic stenosis [Unknown]
  - Mental status changes [Unknown]
  - Vision blurred [Unknown]
  - Hyponatraemia [Unknown]
  - Vitamin D deficiency [Unknown]
  - Muscle spasms [Unknown]
  - Hyperkeratosis [Unknown]
  - Decubitus ulcer [Unknown]
  - Laceration [Unknown]
